FAERS Safety Report 25171388 (Version 1)
Quarter: 2025Q2

REPORT INFORMATION
  Report Type: Spontaneous
  Country: FR (occurrence: FR)
  Receive Date: 20250408
  Receipt Date: 20250408
  Transmission Date: 20250716
  Serious: Yes (Other)
  Sender: AUROBINDO
  Company Number: FR-AFSSAPS-NT2025000190

PATIENT
  Sex: Male

DRUGS (6)
  1. RAMIPRIL [Suspect]
     Active Substance: RAMIPRIL
     Indication: Hypertension
     Route: 064
     Dates: end: 202402
  2. BISOPROLOL [Suspect]
     Active Substance: BISOPROLOL
     Indication: Product used for unknown indication
     Route: 064
     Dates: end: 20240718
  3. ESIDREX [Suspect]
     Active Substance: HYDROCHLOROTHIAZIDE
     Indication: Hypertension
     Route: 064
     Dates: end: 202402
  4. NICARDIPINE HYDROCHLORIDE [Suspect]
     Active Substance: NICARDIPINE HYDROCHLORIDE
     Indication: Hypertension
     Dosage: 1 MORNING, 1 EVENING
     Route: 064
     Dates: end: 20240718
  5. URAPIDIL [Suspect]
     Active Substance: URAPIDIL
     Indication: Hypertension
     Dosage: 180 MILLIGRAM, ONCE A DAY (90 MG MORNING AND EVENING)
     Route: 064
     Dates: end: 20240718
  6. TRANDATE [Suspect]
     Active Substance: LABETALOL HYDROCHLORIDE
     Indication: Hypertension
     Route: 064
     Dates: start: 20240712, end: 20240718

REACTIONS (3)
  - Maternal exposure during pregnancy [Recovered/Resolved]
  - Premature baby [Recovered/Resolved]
  - Low birth weight baby [Recovered/Resolved]

NARRATIVE: CASE EVENT DATE: 20240718
